FAERS Safety Report 7409234-5 (Version None)
Quarter: 2011Q2

REPORT INFORMATION
  Report Type: 
  Country: None (occurrence: None)
  Receive Date: 20110412
  Receipt Date: 20110407
  Transmission Date: 20111010
  Serious: Yes (Hospitalization)
  Sender: FDA-Public Use
  Company Number: A0886434A

PATIENT
  Age: 54 Year
  Sex: Male
  Weight: 93.2 kg

DRUGS (2)
  1. AVANDIA [Suspect]
     Route: 048
     Dates: end: 20070101
  2. AVANDAMET [Suspect]
     Route: 048
     Dates: start: 20030101, end: 20070101

REACTIONS (1)
  - MYOCARDIAL INFARCTION [None]
